FAERS Safety Report 25117259 (Version 7)
Quarter: 2025Q4

REPORT INFORMATION
  Report Type: Report from Study
  Country: JP (occurrence: JP)
  Receive Date: 20250325
  Receipt Date: 20251219
  Transmission Date: 20260118
  Serious: Yes (Other)
  Sender: UCB
  Company Number: JP-UCBJ-CD202503793UCBPHAPROD

PATIENT
  Age: 25 Year
  Sex: Male
  Weight: 39 kg

DRUGS (6)
  1. FENFLURAMINE HYDROCHLORIDE [Suspect]
     Active Substance: FENFLURAMINE HYDROCHLORIDE
     Indication: Lennox-Gastaut syndrome
     Dosage: 0.05 MILLIGRAM/KILOGRAM, 2X/DAY (BID)
     Route: 061
     Dates: start: 20240915
  2. INOVELON [Concomitant]
     Active Substance: RUFINAMIDE
     Indication: Lennox-Gastaut syndrome
     Dosage: 1000 MILLIGRAM, ONCE DAILY (QD)
     Route: 061
     Dates: start: 20130822
  3. DEPAKENE [Concomitant]
     Active Substance: VALPROIC ACID
     Indication: Lennox-Gastaut syndrome
     Dosage: 800 MILLIGRAM, ONCE DAILY (QD)
     Route: 061
  4. ZONISAMIDE [Concomitant]
     Active Substance: ZONISAMIDE
     Indication: Lennox-Gastaut syndrome
     Dosage: 60 MILLIGRAM, ONCE DAILY (QD)
     Route: 061
     Dates: end: 20251021
  5. LAMICTAL [Concomitant]
     Active Substance: LAMOTRIGINE
     Indication: Lennox-Gastaut syndrome
     Dosage: 50 MILLIGRAM, ONCE DAILY (QD)
     Route: 061
  6. PHENOBARBITAL [Concomitant]
     Active Substance: PHENOBARBITAL
     Indication: Lennox-Gastaut syndrome
     Dosage: 60 MILLIGRAM, ONCE DAILY (QD)
     Route: 061

REACTIONS (4)
  - Tonic convulsion [Recovered/Resolved]
  - Self-destructive behaviour [Recovered/Resolved]
  - Decreased appetite [Recovered/Resolved]
  - Influenza [Unknown]

NARRATIVE: CASE EVENT DATE: 20241001
